FAERS Safety Report 26138357 (Version 2)
Quarter: 2025Q4

REPORT INFORMATION
  Report Type: Spontaneous
  Country: US (occurrence: US)
  Receive Date: 20251210
  Receipt Date: 20251211
  Transmission Date: 20260117
  Serious: Yes (Life-Threatening, Hospitalization, Other)
  Sender: SANOFI AVENTIS
  Company Number: US-DialogSolutions-SAAVPROD-PI850842-C1

PATIENT
  Age: 15 Year
  Sex: Male

DRUGS (5)
  1. ANTI-THYMOCYTE GLOBULIN (RABBIT) NOS [Suspect]
     Active Substance: LAPINE T-LYMPHOCYTE IMMUNE GLOBULIN
     Indication: Cystic lung disease
     Dosage: UNK
  2. PREDNISONE [Suspect]
     Active Substance: PREDNISONE
     Indication: Cystic lung disease
     Dosage: UNK
  3. MYCOPHENOLIC ACID [Suspect]
     Active Substance: MYCOPHENOLIC ACID
     Indication: Cystic lung disease
     Dosage: UNK
  4. METHYLPREDNISOLONE [Suspect]
     Active Substance: METHYLPREDNISOLONE
     Indication: Cystic lung disease
     Dosage: UNK
     Route: 042
  5. TACROLIMUS [Suspect]
     Active Substance: TACROLIMUS
     Dosage: UNK

REACTIONS (17)
  - Haemophagocytic lymphohistiocytosis [Recovered/Resolved]
  - Pyrexia [Recovered/Resolved]
  - Illness [Recovered/Resolved]
  - Tachycardia [Recovered/Resolved]
  - Leukopenia [Recovered/Resolved]
  - Pancytopenia [Recovered/Resolved]
  - Lymphadenopathy mediastinal [Recovered/Resolved]
  - Pleural effusion [Recovered/Resolved]
  - Pericardial effusion [Recovered/Resolved]
  - Pulmonary mass [Recovered/Resolved]
  - Bone marrow failure [Recovered/Resolved]
  - Hypotension [Recovered/Resolved]
  - Hypertransaminasaemia [Recovered/Resolved]
  - Condition aggravated [Recovered/Resolved]
  - Epstein-Barr virus infection [Recovered/Resolved]
  - Klebsiella infection [Recovered/Resolved]
  - Off label use [Unknown]
